FAERS Safety Report 25542171 (Version 1)
Quarter: 2025Q3

REPORT INFORMATION
  Report Type: Spontaneous
  Country: US (occurrence: US)
  Receive Date: 20250711
  Receipt Date: 20250711
  Transmission Date: 20251021
  Serious: No
  Sender: Hibrow Healthcare
  Company Number: US-Hibrow Healthcare Private Ltd-2180310

PATIENT

DRUGS (1)
  1. BACLOFEN [Suspect]
     Active Substance: BACLOFEN
     Indication: Product used for unknown indication

REACTIONS (1)
  - Drug ineffective [Unknown]
